FAERS Safety Report 14263903 (Version 2)
Quarter: 2017Q4

REPORT INFORMATION
  Report Type: Spontaneous
  Country: DE (occurrence: DE)
  Receive Date: 20171208
  Receipt Date: 20171212
  Transmission Date: 20180321
  Serious: Yes (Hospitalization)
  Sender: FDA-Public Use
  Company Number: DE-ASTRAZENECA-2017SF24990

PATIENT
  Sex: Male

DRUGS (2)
  1. FORMOTEROL FUMARATE DIHYDRATE [Suspect]
     Active Substance: FORMOTEROL FUMARATE DIHYDRATE
     Dosage: 12 MCG 2X1 PUFF
     Route: 055
  2. DAXAS [Suspect]
     Active Substance: ROFLUMILAST
     Route: 048

REACTIONS (1)
  - Chronic obstructive pulmonary disease [Unknown]
